FAERS Safety Report 9378574 (Version 2)
Quarter: 2013Q4

REPORT INFORMATION
  Report Type: Report from Study
  Country: US (occurrence: US)
  Receive Date: 20130702
  Receipt Date: 20131127
  Transmission Date: 20140711
  Serious: Yes (Hospitalization, Other)
  Sender: FDA-Public Use
  Company Number: US-ALEXION-A201301483

PATIENT
  Age: 11 Year
  Sex: 0
  Weight: 36.5 kg

DRUGS (16)
  1. ECULIZUMAB [Suspect]
     Indication: HAEMOLYTIC URAEMIC SYNDROME
     Dosage: 600 MG, SINGLE
     Route: 042
     Dates: start: 20130319, end: 20130319
  2. ECULIZUMAB [Suspect]
     Dosage: 600 MG, SINGLE
     Route: 042
     Dates: start: 20130326, end: 20130326
  3. ECULIZUMAB [Suspect]
     Dosage: 900 MG, UNK
     Route: 042
     Dates: start: 20130402
  4. MIRALAX [Concomitant]
     Dosage: 17 G, QD
     Route: 048
  5. TYLENOL [Concomitant]
     Indication: PAIN
     Dosage: 160MG/5ML, Q6H
     Route: 048
  6. TYLENOL [Concomitant]
     Indication: HEADACHE
  7. EMLA [Concomitant]
     Dosage: APPLY 60 MIN BEFORE PROCEDURE
  8. APRESOLINE [Concomitant]
     Indication: HYPERTENSION
     Dosage: 10 MG, QID PRN (BP.140/96)
     Route: 048
  9. NORMODYNE [Concomitant]
     Indication: HYPERTENSION
     Dosage: 250 MG, BID
     Route: 048
  10. NORMODYNE [Concomitant]
     Dosage: 150 MG, BID
     Dates: start: 201304
  11. PRINIVIL [Concomitant]
     Indication: HYPERTENSION
     Dosage: 5 MG, BID
     Route: 048
     Dates: start: 201303
  12. PRINIVIL [Concomitant]
     Dosage: 10 MG, BID
     Dates: start: 201304
  13. AMOXIL [Concomitant]
     Dosage: 500 MG, BID
     Route: 048
  14. PNEUMOVAX [Concomitant]
     Indication: IMMUNISATION
     Dosage: UNK
     Dates: start: 20130402, end: 20130402
  15. AUGMENTIN [Concomitant]
     Indication: SINUSITIS
     Dosage: UNK, X 3 WEEKS
     Dates: start: 20130314
  16. PROCARDIA XL [Concomitant]
     Indication: HYPERTENSION
     Dosage: 30 MG, BID
     Dates: end: 201303

REACTIONS (1)
  - Anaemia [Recovering/Resolving]
